FAERS Safety Report 22344605 (Version 3)
Quarter: 2023Q2

REPORT INFORMATION
  Report Type: Spontaneous
  Country: JP (occurrence: JP)
  Receive Date: 20230519
  Receipt Date: 20230623
  Transmission Date: 20230721
  Serious: Yes (Hospitalization, Other)
  Sender: FDA-Public Use
  Company Number: JP-TEVA-2023-JP-2889543

PATIENT
  Age: 25 Year
  Sex: Male

DRUGS (1)
  1. COPAXONE [Suspect]
     Active Substance: GLATIRAMER ACETATE
     Indication: Multiple sclerosis relapse prophylaxis
     Dosage: 20 MILLIGRAM DAILY; ROUTE: INJECTION
     Route: 058
     Dates: start: 2021

REACTIONS (2)
  - Arthritis bacterial [Recovering/Resolving]
  - Injury [Unknown]

NARRATIVE: CASE EVENT DATE: 20230502
